FAERS Safety Report 25081861 (Version 1)
Quarter: 2025Q1

REPORT INFORMATION
  Report Type: Spontaneous
  Country: DE (occurrence: DE)
  Receive Date: 20250317
  Receipt Date: 20250317
  Transmission Date: 20250408
  Serious: Yes (Hospitalization)
  Sender: NOVITIUM PHARMA
  Company Number: DE-NOVITIUMPHARMA-2025DENVP00655

PATIENT
  Age: 4 Month
  Sex: Male

DRUGS (10)
  1. DAPSONE [Suspect]
     Active Substance: DAPSONE
     Indication: Pemphigoid
  2. DAPSONE [Suspect]
     Active Substance: DAPSONE
  3. PREDNISOLONE [Concomitant]
     Active Substance: PREDNISOLONE
     Indication: Pemphigoid
     Route: 048
  4. PREDNISOLONE [Concomitant]
     Active Substance: PREDNISOLONE
  5. PREDNISOLONE [Concomitant]
     Active Substance: PREDNISOLONE
  6. Immune-globulin [Concomitant]
     Indication: Pemphigoid
     Route: 042
  7. MOMETASONE [Concomitant]
     Active Substance: MOMETASONE
     Indication: Pemphigoid
     Route: 061
  8. METHYLPREDNISOLONE [Concomitant]
     Active Substance: METHYLPREDNISOLONE
     Indication: Pemphigoid
     Route: 042
  9. RITUXIMAB [Concomitant]
     Active Substance: RITUXIMAB
     Indication: Pemphigoid
  10. CLOBETASOL [Concomitant]
     Active Substance: CLOBETASOL
     Indication: Product used for unknown indication

REACTIONS (1)
  - Liver disorder [Unknown]
